FAERS Safety Report 12037403 (Version 1)
Quarter: 2016Q1

REPORT INFORMATION
  Report Type: Spontaneous
  Country: US (occurrence: US)
  Receive Date: 20160208
  Receipt Date: 20160208
  Transmission Date: 20160526
  Serious: No
  Sender: FDA-Public Use
  Company Number: US-TEVA-632142USA

PATIENT
  Sex: Female

DRUGS (1)
  1. PROVIGIL [Suspect]
     Active Substance: MODAFINIL
     Indication: FATIGUE

REACTIONS (3)
  - Intentional product use issue [Not Recovered/Not Resolved]
  - Waist circumference increased [Not Recovered/Not Resolved]
  - Abdominal distension [Not Recovered/Not Resolved]
